FAERS Safety Report 14984558 (Version 2)
Quarter: 2018Q4

REPORT INFORMATION
  Report Type: Spontaneous
  Country: US (occurrence: US)
  Receive Date: 20180607
  Receipt Date: 20181129
  Transmission Date: 20190204
  Serious: No
  Sender: FDA-Public Use
  Company Number: US-BRISTOL-MYERS SQUIBB COMPANY-BMS-2018-052186

PATIENT
  Sex: Female

DRUGS (1)
  1. YERVOY [Suspect]
     Active Substance: IPILIMUMAB
     Indication: SARCOMA
     Dosage: 60 MG, Q3WK
     Route: 042

REACTIONS (2)
  - Off label use [Unknown]
  - Adverse event [Unknown]
